FAERS Safety Report 4329172-4 (Version None)
Quarter: 2004Q2

REPORT INFORMATION
  Report Type: 
  Country: None (occurrence: None)
  Receive Date: 20040401
  Receipt Date: 20040324
  Transmission Date: 20050107
  Serious: Yes (Hospitalization)
  Sender: FDA-Public Use
  Company Number: 200411233FR

PATIENT
  Age: 85 Year
  Sex: Female
  Weight: 80 kg

DRUGS (7)
  1. OFLOCET [Suspect]
     Indication: URINARY TRACT INFECTION
     Route: 048
     Dates: start: 20040227, end: 20040228
  2. LASIX [Suspect]
     Route: 048
     Dates: end: 20040227
  3. APROVEL [Suspect]
     Route: 048
     Dates: end: 20040228
  4. TEGELINE [Suspect]
     Route: 042
     Dates: start: 20040224, end: 20040226
  5. PREVISCAN [Suspect]
     Route: 048
  6. NITROGLYCERIN [Concomitant]
  7. PRIMPERAN INJ [Concomitant]
     Dates: start: 20040225, end: 20040301

REACTIONS (3)
  - RENAL ATROPHY [None]
  - RENAL FAILURE ACUTE [None]
  - URINARY TRACT INFECTION [None]
